FAERS Safety Report 5560466-0 (Version None)
Quarter: 2007Q4

REPORT INFORMATION
  Report Type: 
  Country: None (occurrence: None)
  Receive Date: 20071215
  Receipt Date: 20071108
  Transmission Date: 20080405
  Serious: No
  Sender: FDA-Public Use
  Company Number: US-ABBOTT-07P-163-0424303-00

PATIENT
  Sex: Female
  Weight: 50.848 kg

DRUGS (3)
  1. HUMIRA [Suspect]
     Indication: RHEUMATOID ARTHRITIS
     Route: 058
     Dates: start: 20030101, end: 20070201
  2. HUMIRA [Suspect]
     Route: 058
     Dates: start: 20070301
  3. PHENOBARBITAL TAB [Concomitant]
     Indication: CONVULSION
     Route: 048

REACTIONS (2)
  - ARTHROPATHY [None]
  - INFECTION [None]
